FAERS Safety Report 11092385 (Version 1)
Quarter: 2015Q2

REPORT INFORMATION
  Report Type: Spontaneous
  Country: HK (occurrence: None)
  Receive Date: 20150504
  Receipt Date: 20150504
  Transmission Date: 20150821
  Serious: Yes (Death, Hospitalization)
  Sender: FDA-Public Use
  Company Number: IPC201504-000238

PATIENT
  Age: 37 Year
  Sex: Female

DRUGS (2)
  1. CHLOROQUINE PHOSPHATE TABLETS USP (CHLOROQUINE PHOSPHATE 500MG TABLETS) 9CHLOROQUINE PHOSPHATE) (CHLOROQUINE PHOSPHATE) [Suspect]
     Active Substance: CHLOROQUINE PHOSPHATE
  2. HYDROXYCHLOROQUINE SULFATE (HYDROXYCHLOROQUINE SULFATE) (HYDROXYCHLOROQUINE SULFATE) [Suspect]
     Active Substance: HYDROXYCHLOROQUINE SULFATE

REACTIONS (3)
  - Overdose [None]
  - Cardiotoxicity [None]
  - Cardiac arrest [None]
